FAERS Safety Report 19467119 (Version 1)
Quarter: 2021Q2

REPORT INFORMATION
  Report Type: Spontaneous
  Country: US (occurrence: US)
  Receive Date: 20210628
  Receipt Date: 20210628
  Transmission Date: 20210717
  Serious: No
  Sender: FDA-Public Use
  Company Number: US-TEVA-2021-US-1924192

PATIENT
  Sex: Female

DRUGS (1)
  1. VENLAFAXINE [Suspect]
     Active Substance: VENLAFAXINE HYDROCHLORIDE
     Indication: ANXIETY
     Route: 065

REACTIONS (11)
  - Off label use [Not Recovered/Not Resolved]
  - Muscle spasms [Unknown]
  - Abdominal distension [Unknown]
  - Anxiety [Unknown]
  - Insomnia [Unknown]
  - Gait disturbance [Unknown]
  - Coordination abnormal [Unknown]
  - Nausea [Unknown]
  - Dyskinesia [Unknown]
  - Muscle disorder [Unknown]
  - Agitation [Unknown]
